FAERS Safety Report 7788817-7 (Version None)
Quarter: 2011Q3

REPORT INFORMATION
  Report Type: 
  Country: None (occurrence: None)
  Receive Date: 20110930
  Receipt Date: 20110926
  Transmission Date: 20111222
  Serious: Yes (Death, Hospitalization)
  Sender: FDA-Public Use
  Company Number: US-SANOFI-AVENTIS-2011SA062848

PATIENT
  Age: 69 Year
  Sex: Male

DRUGS (6)
  1. LEUCOVORIN CALCIUM [Concomitant]
     Dosage: EVERY 14 DAYS
     Route: 040
  2. EFUDEX [Concomitant]
     Dosage: EVERY 14 DAYS
     Route: 042
  3. LISINOPRIL [Suspect]
     Route: 065
  4. OXALIPLATIN [Suspect]
     Dosage: EVERY 14 DAYS
     Route: 042
  5. OXALIPLATIN [Suspect]
     Dosage: DOSE REDUCED
     Route: 042
  6. EFUDEX [Concomitant]
     Dosage: EVERY 14 DAYS, ON DAY 1
     Route: 040

REACTIONS (11)
  - DIFFUSE ALVEOLAR DAMAGE [None]
  - EOSINOPHILIA [None]
  - OXYGEN SATURATION DECREASED [None]
  - LUNG INFILTRATION [None]
  - RALES [None]
  - PNEUMOTHORAX [None]
  - DYSPNOEA [None]
  - COUGH [None]
  - PYREXIA [None]
  - EOSINOPHILIC PNEUMONIA [None]
  - FATIGUE [None]
